FAERS Safety Report 15988482 (Version 17)
Quarter: 2022Q3

REPORT INFORMATION
  Report Type: Spontaneous
  Country: CA (occurrence: CA)
  Receive Date: 20190221
  Receipt Date: 20220726
  Transmission Date: 20221027
  Serious: Yes (Other)
  Sender: FDA-Public Use
  Company Number: CA-009507513-1902CAN006490

PATIENT
  Age: 10 Year
  Sex: Male

DRUGS (47)
  1. CANCIDAS [Interacting]
     Active Substance: CASPOFUNGIN ACETATE
     Indication: Antifungal prophylaxis
     Dosage: UNK
     Route: 042
  2. CANCIDAS [Interacting]
     Active Substance: CASPOFUNGIN ACETATE
     Indication: Bronchopulmonary aspergillosis
  3. CANCIDAS [Interacting]
     Active Substance: CASPOFUNGIN ACETATE
     Indication: Fibrinous bronchitis
  4. MONTELUKAST SODIUM [Suspect]
     Active Substance: MONTELUKAST SODIUM
     Indication: Product used for unknown indication
     Dosage: DOSAGE FORM NOT SPECIFIED
     Route: 048
  5. PREDNISONE [Suspect]
     Active Substance: PREDNISONE
     Indication: Prophylaxis against transplant rejection
     Dosage: DOSAGE FORM NOT SPECIFIED
     Route: 048
  6. PREDNISONE [Suspect]
     Active Substance: PREDNISONE
     Dosage: DOSAGE FORM NOT SPECIFIED
     Route: 048
  7. PREDNISONE [Suspect]
     Active Substance: PREDNISONE
     Dosage: DOSAGE FORM NOT SPECIFIED
     Route: 048
  8. MYCOPHENOLATE MOFETIL [Suspect]
     Active Substance: MYCOPHENOLATE MOFETIL
     Indication: Prophylaxis against transplant rejection
     Dosage: DOSAGE FORM NOT SPECIFIED
     Route: 048
  9. MYCOPHENOLATE MOFETIL [Suspect]
     Active Substance: MYCOPHENOLATE MOFETIL
     Dosage: DOSAGE FORM NOT SPECIFIED
     Route: 048
  10. MYCOPHENOLATE MOFETIL [Suspect]
     Active Substance: MYCOPHENOLATE MOFETIL
     Dosage: DOSAGE FORM NOT SPECIFIED
     Route: 048
  11. NIFEDIPINE [Suspect]
     Active Substance: NIFEDIPINE
     Indication: Product used for unknown indication
     Dosage: DOSAGE FORM NOT SPECIFIED
     Route: 048
  12. NIFEDIPINE [Suspect]
     Active Substance: NIFEDIPINE
     Dosage: DOSAGE FORM NOT SPECIFIED
     Route: 048
  13. NIFEDIPINE [Suspect]
     Active Substance: NIFEDIPINE
     Dosage: DOSAGE FORM NOT SPECIFIED
     Route: 048
  14. TACROLIMUS [Suspect]
     Active Substance: TACROLIMUS
     Indication: Prophylaxis against transplant rejection
     Dosage: UNK
     Route: 048
  15. TACROLIMUS [Suspect]
     Active Substance: TACROLIMUS
     Dosage: UNK
     Route: 048
  16. TACROLIMUS [Suspect]
     Active Substance: TACROLIMUS
     Dosage: UNK
     Route: 048
  17. AZITHROMYCIN [Suspect]
     Active Substance: AZITHROMYCIN
     Indication: Product used for unknown indication
     Dosage: UNK
     Route: 048
  18. AZITHROMYCIN [Suspect]
     Active Substance: AZITHROMYCIN
     Dosage: DOSAGE FORM NOT SPECIFIED
     Route: 048
  19. AZITHROMYCIN [Suspect]
     Active Substance: AZITHROMYCIN
     Dosage: UNK
     Route: 048
  20. AZITHROMYCIN [Suspect]
     Active Substance: AZITHROMYCIN
     Dosage: DOSAGE FORM NOT SPECIFIED
     Route: 048
  21. AZITHROMYCIN [Suspect]
     Active Substance: AZITHROMYCIN
     Dosage: UNK
     Route: 048
  22. AZITHROMYCIN [Suspect]
     Active Substance: AZITHROMYCIN
     Dosage: DOSAGE FORM NOT SPECIFIED
     Route: 048
  23. CIPROFLOXACIN HYDROCHLORIDE [Suspect]
     Active Substance: CIPROFLOXACIN HYDROCHLORIDE
     Indication: Product used for unknown indication
     Dosage: 4 DOSAGE FORM
     Route: 048
  24. CIPROFLOXACIN HYDROCHLORIDE [Suspect]
     Active Substance: CIPROFLOXACIN HYDROCHLORIDE
     Dosage: UNK
     Route: 048
  25. CIPROFLOXACIN HYDROCHLORIDE [Suspect]
     Active Substance: CIPROFLOXACIN HYDROCHLORIDE
     Dosage: UNK
     Route: 048
  26. SULFAMETHOXAZOLE\TRIMETHOPRIM [Suspect]
     Active Substance: SULFAMETHOXAZOLE\TRIMETHOPRIM
     Indication: Product used for unknown indication
     Dosage: UNK
     Route: 048
  27. SULFAMETHOXAZOLE\TRIMETHOPRIM [Suspect]
     Active Substance: SULFAMETHOXAZOLE\TRIMETHOPRIM
     Dosage: UNK
     Route: 048
  28. SULFAMETHOXAZOLE\TRIMETHOPRIM [Suspect]
     Active Substance: SULFAMETHOXAZOLE\TRIMETHOPRIM
     Dosage: UNK
     Route: 048
  29. VORICONAZOLE [Suspect]
     Active Substance: VORICONAZOLE
     Indication: Bronchopulmonary aspergillosis
     Dosage: DOSAGE FORM NOT SPECIFIED
     Route: 048
  30. VORICONAZOLE [Suspect]
     Active Substance: VORICONAZOLE
     Indication: Product used for unknown indication
     Dosage: UNK
     Route: 042
  31. VORICONAZOLE [Suspect]
     Active Substance: VORICONAZOLE
     Indication: Antifungal treatment
     Dosage: DOSAGE FORM NOT SPECIFIED
     Route: 048
  32. VORICONAZOLE [Suspect]
     Active Substance: VORICONAZOLE
     Indication: Fibrinous bronchitis
     Dosage: UNK
     Route: 042
  33. VORICONAZOLE [Suspect]
     Active Substance: VORICONAZOLE
     Dosage: DOSAGE FORM NOT SPECIFIED
     Route: 048
  34. VORICONAZOLE [Suspect]
     Active Substance: VORICONAZOLE
     Dosage: UNK
     Route: 042
  35. PENTAMIDINE MESYLATE [Suspect]
     Active Substance: PENTAMIDINE MESYLATE
     Indication: Product used for unknown indication
     Dosage: UNK
     Route: 065
  36. PANTOPRAZOLE SODIUM ANHYDROUS [Suspect]
     Active Substance: PANTOPRAZOLE SODIUM ANHYDROUS
     Indication: Product used for unknown indication
     Dosage: DOSAGE FORM NOT SPECIFIED
     Route: 048
  37. PANTOPRAZOLE SODIUM ANHYDROUS [Suspect]
     Active Substance: PANTOPRAZOLE SODIUM ANHYDROUS
     Dosage: UNK
     Route: 042
  38. PANTOPRAZOLE SODIUM ANHYDROUS [Suspect]
     Active Substance: PANTOPRAZOLE SODIUM ANHYDROUS
     Dosage: DOSAGE FORM NOT SPECIFIED
     Route: 048
  39. PANTOPRAZOLE SODIUM ANHYDROUS [Suspect]
     Active Substance: PANTOPRAZOLE SODIUM ANHYDROUS
     Dosage: UNK
     Route: 042
  40. PANTOPRAZOLE SODIUM ANHYDROUS [Suspect]
     Active Substance: PANTOPRAZOLE SODIUM ANHYDROUS
     Dosage: DOSAGE FORM NOT SPECIFIED
     Route: 048
  41. PANTOPRAZOLE SODIUM ANHYDROUS [Suspect]
     Active Substance: PANTOPRAZOLE SODIUM ANHYDROUS
     Dosage: UNK
     Route: 042
  42. SULFADIAZINE\TRIMETHOPRIM [Suspect]
     Active Substance: SULFADIAZINE\TRIMETHOPRIM
     Indication: Product used for unknown indication
     Dosage: UNK, 1220 DAYS
     Route: 048
  43. SULFADIAZINE\TRIMETHOPRIM [Suspect]
     Active Substance: SULFADIAZINE\TRIMETHOPRIM
     Dosage: UNK
     Route: 048
  44. SULFATRIM [Suspect]
     Active Substance: SULFAMETHOXAZOLE\TRIMETHOPRIM
     Indication: Product used for unknown indication
     Dosage: UNK
     Route: 048
  45. SULFATRIM [Suspect]
     Active Substance: SULFAMETHOXAZOLE\TRIMETHOPRIM
     Dosage: UNK
     Route: 048
  46. AMPHOTERICIN B [Concomitant]
     Active Substance: AMPHOTERICIN B
     Indication: Bronchopulmonary aspergillosis
     Dosage: UNK
     Route: 065
  47. AMPHOTERICIN B [Concomitant]
     Active Substance: AMPHOTERICIN B
     Indication: Fibrinous bronchitis

REACTIONS (18)
  - Actinic keratosis [Not Recovered/Not Resolved]
  - Dysplastic naevus [Not Recovered/Not Resolved]
  - Photodermatosis [Not Recovered/Not Resolved]
  - Photosensitivity reaction [Not Recovered/Not Resolved]
  - Solar lentigo [Not Recovered/Not Resolved]
  - Squamous cell carcinoma of skin [Not Recovered/Not Resolved]
  - Drug level increased [Not Recovered/Not Resolved]
  - Drug interaction [Not Recovered/Not Resolved]
  - Macule [Unknown]
  - Blister [Unknown]
  - Sunburn [Unknown]
  - Scab [Unknown]
  - Skin mass [Unknown]
  - Erythema [Unknown]
  - Photoonycholysis [Unknown]
  - Nail discolouration [Unknown]
  - Lip blister [Unknown]
  - Fungal infection [Recovered/Resolved]
